FAERS Safety Report 5079439-X (Version None)
Quarter: 2006Q3

REPORT INFORMATION
  Report Type: 
  Country: None (occurrence: None)
  Receive Date: 20060811
  Receipt Date: 20060811
  Transmission Date: 20061208
  Serious: No
  Sender: FDA-Public Use
  Company Number: None

PATIENT
  Sex: Female
  Weight: 104.3273 kg

DRUGS (1)
  1. GENERIC MIDRIN [Suspect]
     Indication: MIGRAINE
     Dosage: SEE IMAGE
     Route: 048

REACTIONS (5)
  - HYPERSENSITIVITY [None]
  - PHARMACEUTICAL PRODUCT COMPLAINT [None]
  - RASH [None]
  - REACTION TO DRUG EXCIPIENTS [None]
  - SWOLLEN TONGUE [None]
